FAERS Safety Report 25034915 (Version 1)
Quarter: 2025Q1

REPORT INFORMATION
  Report Type: Spontaneous
  Country: US (occurrence: US)
  Receive Date: 20250304
  Receipt Date: 20250304
  Transmission Date: 20250409
  Serious: Yes (Death, Hospitalization, Other)
  Sender: SPECGX
  Company Number: US-SPECGX-T202500557

PATIENT
  Age: 7 Decade
  Sex: Male

DRUGS (7)
  1. POSACONAZOLE [Interacting]
     Active Substance: POSACONAZOLE
     Indication: Prophylaxis
     Route: 065
  2. AZACITIDINE [Suspect]
     Active Substance: AZACITIDINE
     Indication: Myelodysplastic syndrome
     Route: 065
  3. RUXOLITINIB [Suspect]
     Active Substance: RUXOLITINIB
     Indication: Myelofibrosis
     Route: 065
  4. MICAFUNGIN [Suspect]
     Active Substance: MICAFUNGIN SODIUM
     Indication: Prophylaxis
     Route: 065
  5. PACRITINIB [Interacting]
     Active Substance: PACRITINIB
     Indication: Myelofibrosis
     Dosage: 100 MILLIGRAM, BID
     Route: 065
  6. PACRITINIB [Interacting]
     Active Substance: PACRITINIB
     Dosage: 100 MILLIGRAM, QD
     Route: 065
  7. PACRITINIB [Interacting]
     Active Substance: PACRITINIB
     Route: 065

REACTIONS (10)
  - Death [Fatal]
  - Bacteraemia [Unknown]
  - Pericardial effusion [Unknown]
  - Septic shock [Unknown]
  - Neutropenia [Unknown]
  - Drug interaction [Unknown]
  - Dyspnoea [Not Recovered/Not Resolved]
  - Hepatosplenomegaly [Unknown]
  - Cough [Not Recovered/Not Resolved]
  - Oedema peripheral [Not Recovered/Not Resolved]
